FAERS Safety Report 6308114-6 (Version None)
Quarter: 2009Q3

REPORT INFORMATION
  Report Type: 
  Country: None (occurrence: None)
  Receive Date: 20090813
  Receipt Date: 20090803
  Transmission Date: 20100115
  Serious: Yes (Hospitalization)
  Sender: FDA-Public Use
  Company Number: US-AMGEN-US265325

PATIENT
  Sex: Female

DRUGS (31)
  1. PANITUMUMAB [Suspect]
     Indication: COLORECTAL CANCER
     Route: 042
     Dates: start: 20070703
  2. LISINOPRIL [Suspect]
     Dates: start: 20070201
  3. PRAZSOIN HCL [Suspect]
     Dates: start: 20070201
  4. VERAPAMIL [Suspect]
  5. IRINOTECAN HCL [Concomitant]
     Route: 042
  6. FLUOROURACIL [Concomitant]
     Route: 042
  7. LEUCOVORIN CALCIUM [Concomitant]
     Route: 065
  8. NOVOLOG [Concomitant]
     Dates: start: 20070201
  9. HYDROCHLOROTHIAZIDE [Concomitant]
     Dates: start: 20070201
  10. CLONIDINE [Concomitant]
     Dates: start: 20070201
  11. LOVASTATIN [Concomitant]
     Dates: start: 20070201
  12. ESOMEPRAZOLE [Concomitant]
     Dates: start: 20070201
  13. MEGESTROL ACETATE [Concomitant]
     Dates: start: 20070618
  14. LORTAB [Concomitant]
     Dates: start: 20070301
  15. KLOR-CON [Concomitant]
     Dates: start: 20070504, end: 20070727
  16. DOCUSATE SODIUM [Concomitant]
     Dates: start: 20070409
  17. FERROUS SULFATE TAB [Concomitant]
     Dates: start: 20070228
  18. PROCHLORPERAZINE [Concomitant]
     Dates: start: 20070201
  19. PROCRIT [Concomitant]
     Dates: start: 20070423
  20. TUCKS [Concomitant]
     Dates: start: 20071030
  21. WARFARIN SODIUM [Concomitant]
  22. SENOKOT [Concomitant]
     Dates: start: 20071025
  23. NEURONTIN [Concomitant]
     Dates: start: 20071219
  24. MAGNESIUM OXIDE [Concomitant]
  25. ACYCLOVIR [Concomitant]
     Dates: start: 20080212, end: 20080226
  26. METOPROLOL SUCCINATE [Concomitant]
     Dates: start: 20080116
  27. CELEXA [Concomitant]
     Dates: start: 20080115
  28. DIGOXIN [Concomitant]
     Dates: start: 20080116
  29. POTASSIUM CHLORIDE [Concomitant]
  30. OSCAL [Concomitant]
     Dates: start: 20080118
  31. ZOFRAN [Concomitant]

REACTIONS (3)
  - HYPOKALAEMIA [None]
  - HYPOMAGNESAEMIA [None]
  - MENTAL DISORDER [None]
